FAERS Safety Report 25290453 (Version 1)
Quarter: 2025Q2

REPORT INFORMATION
  Report Type: Other
  Country: FR (occurrence: FR)
  Receive Date: 20250510
  Receipt Date: 20250510
  Transmission Date: 20250716
  Serious: Yes (Hospitalization)
  Sender: ZYDUS PHARM
  Company Number: None

PATIENT

DRUGS (11)
  1. OLANZAPINE [Interacting]
     Active Substance: OLANZAPINE
     Indication: Psychotic disorder
     Route: 048
  2. RISPERIDONE [Interacting]
     Active Substance: RISPERIDONE
     Indication: Psychotic disorder
     Route: 048
  3. DEPAKOTE [Interacting]
     Active Substance: DIVALPROEX SODIUM
     Indication: Psychotic disorder
     Route: 048
  4. QUETIAPINE FUMARATE [Interacting]
     Active Substance: QUETIAPINE FUMARATE
     Indication: Psychotic disorder
     Route: 048
  5. DIAZEPAM [Interacting]
     Active Substance: DIAZEPAM
     Indication: Psychotic disorder
     Route: 048
  6. HALDOL [Interacting]
     Active Substance: HALOPERIDOL
     Indication: Psychotic disorder
     Route: 048
  7. LOXAPINE SUCCINATE [Interacting]
     Active Substance: LOXAPINE SUCCINATE
     Indication: Psychotic disorder
     Route: 048
  8. HERBALS\SAW PALMETTO [Concomitant]
     Active Substance: HERBALS\SAW PALMETTO
     Indication: Product used for unknown indication
     Route: 048
  9. TAMSULOSIN [Concomitant]
     Active Substance: TAMSULOSIN
     Indication: Product used for unknown indication
     Route: 048
  10. NICARDIPINE HYDROCHLORIDE [Concomitant]
     Active Substance: NICARDIPINE HYDROCHLORIDE
     Indication: Product used for unknown indication
     Route: 048
  11. TROPATEPINE [Concomitant]
     Active Substance: TROPATEPINE
     Indication: Product used for unknown indication
     Route: 048

REACTIONS (3)
  - Drug interaction [Not Recovered/Not Resolved]
  - Pneumonia aspiration [Not Recovered/Not Resolved]
  - Somnolence [Not Recovered/Not Resolved]

NARRATIVE: CASE EVENT DATE: 20250331
